FAERS Safety Report 8461770-9 (Version None)
Quarter: 2012Q2

REPORT INFORMATION
  Report Type: 
  Country: None (occurrence: None)
  Receive Date: 20120618
  Receipt Date: 20120601
  Transmission Date: 20120825
  Serious: Yes (Other)
  Sender: FDA-Public Use
  Company Number: 2012MA006852

PATIENT
  Age: 43 Year
  Sex: Male

DRUGS (4)
  1. LATANOPROST [Concomitant]
  2. DEXAMETHASONE [Concomitant]
  3. NEDOCROMIL SODIUM [Concomitant]
  4. BETAMETHASONE VALERATE [Suspect]
     Indication: ECZEMA
     Dosage: 100 GM;QW;TOP
     Route: 061

REACTIONS (3)
  - CORNEAL SCAR [None]
  - GLAUCOMA [None]
  - SELF-MEDICATION [None]
